FAERS Safety Report 7544136-5 (Version None)
Quarter: 2011Q2

REPORT INFORMATION
  Report Type: 
  Country: None (occurrence: None)
  Receive Date: 20110613
  Receipt Date: 20060327
  Transmission Date: 20111010
  Serious: Yes (Death, Hospitalization)
  Sender: FDA-Public Use
  Company Number: PHHO2006CO04984

PATIENT
  Sex: Female

DRUGS (3)
  1. PLAVIX [Concomitant]
     Dosage: UNKNOWN
  2. ACETAMINOPHEN W/ CODEINE [Concomitant]
     Dosage: UNKNOWN
  3. DIOVAN HCT [Suspect]
     Indication: HYPERTENSION
     Dosage: 160/12.5 MG ONCE A DAY
     Route: 048
     Dates: start: 20050906, end: 20060201

REACTIONS (4)
  - PARALYSIS [None]
  - EFFUSION [None]
  - VOMITING [None]
  - BLOOD PRESSURE INCREASED [None]
